FAERS Safety Report 9780963 (Version 1)
Quarter: 2013Q4

REPORT INFORMATION
  Report Type: Spontaneous
  Country: IE (occurrence: IE)
  Receive Date: 20131224
  Receipt Date: 20131224
  Transmission Date: 20140711
  Serious: Yes (Other)
  Sender: FDA-Public Use
  Company Number: IE-JNJFOC-20131207435

PATIENT
  Age: 40 Year
  Sex: Female

DRUGS (4)
  1. SUDAFED DECONGESTANT [Suspect]
     Route: 048
  2. SUDAFED DECONGESTANT [Suspect]
     Indication: NASAL CONGESTION
     Route: 048
  3. SOLPADEINE [Suspect]
     Indication: PRODUCT USED FOR UNKNOWN INDICATION
     Route: 048
  4. EXPUTEX [Concomitant]
     Indication: PRODUCT USED FOR UNKNOWN INDICATION
     Dosage: 250 MG/ 5ML
     Route: 065

REACTIONS (1)
  - Vaginal haemorrhage [Recovered/Resolved]
